FAERS Safety Report 17283570 (Version 1)
Quarter: 2020Q1

REPORT INFORMATION
  Report Type: Spontaneous
  Country: US (occurrence: US)
  Receive Date: 20191227
  Receipt Date: 20191227
  Transmission Date: 20200409
  Serious: No
  Sender: FDA-Public Use
  Company Number: None

PATIENT
  Age: 58 Year
  Sex: Female
  Weight: 66.68 kg

DRUGS (8)
  1. TRIAMCINOLONE ACETONIDE 0.1% CREAM [Suspect]
     Active Substance: TRIAMCINOLONE ACETONIDE
  2. CARBAMAZINE [Concomitant]
  3. SYNTHROID [Concomitant]
     Active Substance: LEVOTHYROXINE SODIUM
  4. THYROID MEDICATION [Suspect]
     Active Substance: UNSPECIFIED INGREDIENT
  5. CALCIUM [Suspect]
     Active Substance: CALCIUM
     Indication: PRODUCT USED FOR UNKNOWN INDICATION
     Dosage: ?          QUANTITY:600 ML MILLILITRE(S);?
     Route: 048
     Dates: start: 20191007, end: 20191204
  6. FLUOCINONIDE 0.05% [Suspect]
     Active Substance: FLUOCINONIDE
  7. ZONISAMIDE. [Concomitant]
     Active Substance: ZONISAMIDE
  8. WOMENS LAXATIVE [Concomitant]
     Active Substance: BISACODYL

REACTIONS (6)
  - Alopecia [None]
  - Nervousness [None]
  - Skin exfoliation [None]
  - Rash [None]
  - Trichorrhexis [None]
  - Product use complaint [None]

NARRATIVE: CASE EVENT DATE: 20191129
